FAERS Safety Report 5456451-X (Version None)
Quarter: 2007Q3

REPORT INFORMATION
  Report Type: 
  Country: None (occurrence: None)
  Receive Date: 20070914
  Receipt Date: 20070914
  Transmission Date: 20080115
  Serious: Yes (Other)
  Sender: FDA-Public Use
  Company Number: None

PATIENT
  Age: 48 Year
  Sex: Male
  Weight: 77.1115 kg

DRUGS (2)
  1. COZAAR [Suspect]
     Indication: HYPERTENSION
     Dosage: 50MG QD PO
     Route: 048
     Dates: start: 20070908, end: 20070909
  2. COZAAR [Suspect]
     Indication: VENTRICULAR HYPERTROPHY
     Dosage: 50MG QD PO
     Route: 048
     Dates: start: 20070908, end: 20070909

REACTIONS (12)
  - COUGH [None]
  - DRUG HYPERSENSITIVITY [None]
  - DRY SKIN [None]
  - ERYTHEMA [None]
  - FATIGUE [None]
  - FEELING HOT [None]
  - FLUSHING [None]
  - HYPOAESTHESIA FACIAL [None]
  - RASH [None]
  - SKIN EXFOLIATION [None]
  - SUNBURN [None]
  - SWELLING FACE [None]
